FAERS Safety Report 6336159-9 (Version None)
Quarter: 2009Q3

REPORT INFORMATION
  Report Type: 
  Country: None (occurrence: None)
  Receive Date: 20090831
  Receipt Date: 20090831
  Transmission Date: 20100115
  Serious: Yes (Hospitalization)
  Sender: FDA-Public Use
  Company Number: None

PATIENT
  Age: 51 Year
  Sex: Male
  Weight: 85.7 kg

DRUGS (1)
  1. TRAZODONE HCL [Suspect]
     Dosage: 50 MG AT BEDTIME PO
     Route: 048
     Dates: start: 20090422, end: 20090718

REACTIONS (3)
  - INTENTIONAL OVERDOSE [None]
  - SEDATION [None]
  - SOMNOLENCE [None]
